FAERS Safety Report 22058064 (Version 1)
Quarter: 2023Q1

REPORT INFORMATION
  Report Type: Spontaneous
  Country: BR (occurrence: BR)
  Receive Date: 20230303
  Receipt Date: 20230303
  Transmission Date: 20230417
  Serious: Yes (Other)
  Sender: FDA-Public Use
  Company Number: BR-ABBVIE-4326609

PATIENT
  Sex: Male
  Weight: 112 kg

DRUGS (2)
  1. HUMIRA [Suspect]
     Active Substance: ADALIMUMAB
     Indication: Behcet^s syndrome
     Dosage: STRENGTH: 40 MILLIGRAM
     Route: 058
     Dates: start: 2019
  2. ATORVASTATIN [Concomitant]
     Active Substance: ATORVASTATIN
     Indication: Blood cholesterol abnormal
     Dosage: STRENGTH: 20 MILLIGRAM?FREQUENCY TEXT: AS NEEDED

REACTIONS (3)
  - Umbilical hernia [Unknown]
  - Off label use [Unknown]
  - Gallbladder operation [Unknown]
